FAERS Safety Report 16548800 (Version 1)
Quarter: 2019Q3

REPORT INFORMATION
  Report Type: Spontaneous
  Country: PT (occurrence: PT)
  Receive Date: 20190709
  Receipt Date: 20190709
  Transmission Date: 20191004
  Serious: Yes (Hospitalization, Other)
  Sender: FDA-Public Use
  Company Number: PHHY2019PT156928

PATIENT
  Age: 32 Year
  Sex: Female

DRUGS (4)
  1. LEVOTHYROXINE. [Concomitant]
     Active Substance: LEVOTHYROXINE
     Indication: AUTOIMMUNE THYROIDITIS
     Route: 065
  2. AMOXICILLIN+CLAVULANIC ACID [Suspect]
     Active Substance: AMOXICILLIN\CLAVULANIC ACID
     Indication: ANTIBIOTIC THERAPY
     Route: 065
  3. AZITHROMYCIN ANHYDROUS. [Suspect]
     Active Substance: AZITHROMYCIN ANHYDROUS
     Indication: ANTIBIOTIC THERAPY
     Route: 065
  4. DESOGESTREL [Suspect]
     Active Substance: DESOGESTREL
     Indication: ORAL CONTRACEPTION
     Route: 048

REACTIONS (11)
  - Hepatosplenomegaly [Unknown]
  - Inflammation [Unknown]
  - Pyrexia [Unknown]
  - Pleurisy [Unknown]
  - Cytomegalovirus infection [Unknown]
  - Abdominal discomfort [Unknown]
  - Portal vein thrombosis [Recovered/Resolved]
  - Therapy non-responder [Unknown]
  - Epstein-Barr virus infection [Unknown]
  - Flushing [Unknown]
  - Hepatocellular injury [Unknown]
